FAERS Safety Report 14895388 (Version 1)
Quarter: 2018Q2

REPORT INFORMATION
  Report Type: Spontaneous
  Country: FR (occurrence: FR)
  Receive Date: 20180515
  Receipt Date: 20180515
  Transmission Date: 20180711
  Serious: Yes (Hospitalization, Other)
  Sender: FDA-Public Use
  Company Number: FR-MERCK KGAA-2047742

PATIENT
  Age: 42 Year
  Sex: Female
  Weight: 52 kg

DRUGS (7)
  1. OESTRODOSE [Concomitant]
     Active Substance: ESTRADIOL
  2. PANTOPRAZOLE [Concomitant]
     Active Substance: PANTOPRAZOLE
  3. DUPHASTON [Concomitant]
     Active Substance: DYDROGESTERONE
  4. NOVOTHYROX [Suspect]
     Active Substance: LEVOTHYROXINE SODIUM
     Indication: PRODUCT USED FOR UNKNOWN INDICATION
  5. KETOPROFEN. [Concomitant]
     Active Substance: KETOPROFEN
  6. NOVOTHYROX [Suspect]
     Active Substance: LEVOTHYROXINE SODIUM
  7. LEVOTHYROX NF [Suspect]
     Active Substance: LEVOTHYROXINE SODIUM

REACTIONS (29)
  - Hypothyroidism [None]
  - Asthenia [None]
  - Blood thyroid stimulating hormone decreased [Not Recovered/Not Resolved]
  - Arthralgia [None]
  - Alanine aminotransferase increased [None]
  - Aspartate aminotransferase increased [None]
  - Blood alkaline phosphatase increased [Recovered/Resolved]
  - Serum ferritin increased [None]
  - Gamma-glutamyltransferase increased [Recovered/Resolved]
  - Mean cell haemoglobin concentration decreased [None]
  - Blood cholesterol increased [None]
  - Transferrin saturation increased [None]
  - Weight decreased [None]
  - Hyperthyroidism [None]
  - Feeling abnormal [None]
  - Blood thyroid stimulating hormone increased [None]
  - Gastrointestinal hypermotility [None]
  - Total cholesterol/HDL ratio increased [Recovered/Resolved]
  - Nervousness [None]
  - Thermophobia [None]
  - Mean platelet volume increased [None]
  - Fatigue [None]
  - Visual impairment [None]
  - Low density lipoprotein increased [None]
  - Balance disorder [None]
  - Dry eye [None]
  - Hyperhidrosis [None]
  - Sleep disorder [None]
  - Dry mouth [None]

NARRATIVE: CASE EVENT DATE: 20170123
